FAERS Safety Report 7846425-3 (Version None)
Quarter: 2011Q4

REPORT INFORMATION
  Report Type: 
  Country: None (occurrence: None)
  Receive Date: 20111025
  Receipt Date: 20111025
  Transmission Date: 20120403
  Serious: Yes (Other)
  Sender: FDA-Public Use
  Company Number: None

PATIENT
  Age: 44 Year
  Sex: Male
  Weight: 77.11 kg

DRUGS (1)
  1. CEFDINIR [Suspect]
     Indication: SINUSITIS
     Dosage: 300 MG
     Route: 048
     Dates: start: 20111017, end: 20111019

REACTIONS (3)
  - HEADACHE [None]
  - ASTHENIA [None]
  - DECREASED APPETITE [None]
